FAERS Safety Report 25527443 (Version 1)
Quarter: 2025Q3

REPORT INFORMATION
  Report Type: Spontaneous
  Country: CN (occurrence: CN)
  Receive Date: 20250708
  Receipt Date: 20250708
  Transmission Date: 20251021
  Serious: Yes (Other)
  Sender: ASTELLAS
  Company Number: CN-ASTELLAS-2025-AER-036373

PATIENT
  Sex: Male
  Weight: 55 kg

DRUGS (3)
  1. PADCEV [Suspect]
     Active Substance: ENFORTUMAB VEDOTIN-EJFV
     Indication: Bladder disorder
     Route: 042
     Dates: start: 20250617
  2. PADCEV [Suspect]
     Active Substance: ENFORTUMAB VEDOTIN-EJFV
     Route: 042
     Dates: start: 20250627
  3. Loqtorz [Concomitant]
     Indication: Product used for unknown indication
     Route: 042
     Dates: start: 20250617

REACTIONS (3)
  - Cardiac failure [Unknown]
  - Blood creatinine abnormal [Unknown]
  - Rash erythematous [Not Recovered/Not Resolved]

NARRATIVE: CASE EVENT DATE: 20250624
